FAERS Safety Report 7360897-2 (Version None)
Quarter: 2011Q1

REPORT INFORMATION
  Report Type: 
  Country: None (occurrence: None)
  Receive Date: 20110318
  Receipt Date: 20110317
  Transmission Date: 20110831
  Serious: Yes (Death, Hospitalization)
  Sender: FDA-Public Use
  Company Number: US-B.I. PHARMACEUTICALS,INC./RIDGEFIELD-2011-BP-01210BP

PATIENT
  Age: 70 Year
  Sex: Female
  Weight: 48.08 kg

DRUGS (9)
  1. PLAVIX [Concomitant]
     Dosage: 75 MG
     Route: 048
  2. AMIODARONE HCL [Concomitant]
     Dosage: 100 MG
     Route: 048
  3. ASPIRIN [Concomitant]
     Dosage: 325 MG
     Route: 048
  4. TOPROL-XL [Concomitant]
     Dosage: 50 MG
     Route: 048
  5. NIASPAN [Concomitant]
     Dosage: 500 MG
     Route: 048
  6. CRESTOR [Concomitant]
     Dosage: 20 MG
     Route: 048
  7. DEMADEX [Concomitant]
     Dosage: 20 MG
     Route: 048
  8. PRADAXA [Suspect]
     Indication: ATRIAL FIBRILLATION
     Dosage: 150 MG
     Route: 048
     Dates: start: 20110104, end: 20110116
  9. QUINAPRIL [Concomitant]
     Dosage: 5 MG
     Route: 048

REACTIONS (11)
  - DYSPNOEA [None]
  - DYSPEPSIA [None]
  - TOOTHACHE [None]
  - BLOODY DISCHARGE [None]
  - CHEST DISCOMFORT [None]
  - GASTROOESOPHAGEAL REFLUX DISEASE [None]
  - CARDIAC FAILURE [None]
  - ERUCTATION [None]
  - APHAGIA [None]
  - FOREIGN BODY [None]
  - MUSCLE SPASMS [None]
